FAERS Safety Report 9317669 (Version 1)
Quarter: 2013Q2

REPORT INFORMATION
  Report Type: Spontaneous
  Country: IT (occurrence: None)
  Receive Date: 20130524
  Receipt Date: 20130524
  Transmission Date: 20140414
  Serious: Yes (Hospitalization)
  Sender: FDA-Public Use
  Company Number: 2013000111

PATIENT
  Age: 91 Year
  Sex: Female

DRUGS (6)
  1. ACEON (PERINDOPRIL ERBUMINE) [Suspect]
     Indication: PRODUCT USED FOR UNKNOWN INDICATION
     Route: 048
     Dates: start: 20120228, end: 20130227
  2. SINEMET (CARBIDOPA, LEVODOPA) [Concomitant]
  3. LASIX (FUROSEMIDE) [Concomitant]
  4. CYTOEC (MISOPROSTOL) [Concomitant]
  5. CARDIASPIRIN (ACETYLSALICYLIC ACID) [Concomitant]
  6. ZOLOFT (SERTRALINE HYDROCHLORIDE) [Concomitant]

REACTIONS (2)
  - Dyspnoea [None]
  - Cough [None]
